FAERS Safety Report 7230735-7 (Version None)
Quarter: 2011Q1

REPORT INFORMATION
  Report Type: 
  Country: None (occurrence: None)
  Receive Date: 20110118
  Receipt Date: 20110105
  Transmission Date: 20110831
  Serious: Yes (Death, Other)
  Sender: FDA-Public Use
  Company Number: US-CELGENEUS-163-50794-09050698

PATIENT

DRUGS (7)
  1. VIDAZA [Suspect]
     Dosage: 8, 16, 24 AND 32MG/M2, DAILY X 5 STARTING ON DAY +42 FOR 1-4 Q28 DAY CYCLES
     Route: 058
  2. GEMTUZUMAB OZOGAMICIN [Concomitant]
  3. MELPHALAN [Concomitant]
  4. TACROLIMUS [Concomitant]
     Indication: PROPHYLAXIS
     Route: 065
  5. MINI-METHOTREXATE [Concomitant]
     Indication: PROPHYLAXIS
  6. VIDAZA [Suspect]
  7. FLUDARABINE PHOSPHATE [Concomitant]

REACTIONS (26)
  - RETINAL HAEMORRHAGE [None]
  - RESPIRATORY TRACT INFECTION [None]
  - PAPILLOEDEMA [None]
  - BLOOD CREATININE INCREASED [None]
  - GRAFT VERSUS HOST DISEASE [None]
  - PNEUMONIA FUNGAL [None]
  - MULTI-ORGAN FAILURE [None]
  - NAUSEA [None]
  - DEATH [None]
  - VENOOCCLUSIVE LIVER DISEASE [None]
  - TRANSAMINASES INCREASED [None]
  - PARAINFLUENZAE VIRUS INFECTION [None]
  - PRURITUS [None]
  - PNEUMONIA [None]
  - HAEMORRHAGE [None]
  - CONFUSIONAL STATE [None]
  - DISEASE RECURRENCE [None]
  - PULMONARY HAEMORRHAGE [None]
  - CYTOMEGALOVIRUS INFECTION [None]
  - BACTERAEMIA [None]
  - CHOLECYSTITIS [None]
  - CONJUNCTIVAL HYPERAEMIA [None]
  - MOUTH ULCERATION [None]
  - THROMBOCYTOPENIA [None]
  - FATIGUE [None]
  - NEUTROPENIA [None]
